FAERS Safety Report 19043198 (Version 2)
Quarter: 2021Q2

REPORT INFORMATION
  Report Type: Spontaneous
  Country: JP (occurrence: JP)
  Receive Date: 20210323
  Receipt Date: 20210416
  Transmission Date: 20210717
  Serious: Yes (Death)
  Sender: FDA-Public Use
  Company Number: JP-JAZZ-2021-JP-004968

PATIENT
  Age: 66 Year
  Sex: Female

DRUGS (3)
  1. DEFITELIO [Suspect]
     Active Substance: DEFIBROTIDE SODIUM
     Dosage: 16 MILLIGRAM/KILOGRAM/ 24 HOURS
     Route: 042
     Dates: start: 20210219, end: 20210222
  2. DEFITELIO [Suspect]
     Active Substance: DEFIBROTIDE SODIUM
     Dosage: 12 MILLIGRAM/KILOGRAM/ 24 HOURS
     Route: 042
     Dates: start: 20210218, end: 20210218
  3. DEFITELIO [Suspect]
     Active Substance: DEFIBROTIDE SODIUM
     Indication: VENOOCCLUSIVE LIVER DISEASE
     Dosage: 8 MILLIGRAM/KILOGRAM/24 HOURS
     Route: 042
     Dates: start: 20210217, end: 20210217

REACTIONS (1)
  - Off label use [Unknown]

NARRATIVE: CASE EVENT DATE: 20210217
